FAERS Safety Report 7562520-0 (Version None)
Quarter: 2011Q2

REPORT INFORMATION
  Report Type: 
  Country: None (occurrence: None)
  Receive Date: 20110525
  Receipt Date: 20110404
  Transmission Date: 20111010
  Serious: No
  Sender: FDA-Public Use
  Company Number: 326247

PATIENT
  Age: 75 Year
  Sex: Male

DRUGS (1)
  1. VICTOZA [Suspect]
     Indication: TYPE 2 DIABETES MELLITUS
     Dosage: 1.2 MG, QD, SUBCUTANEOUS
     Route: 058
     Dates: start: 20110302, end: 20110315

REACTIONS (9)
  - DIZZINESS [None]
  - ASTHENIA [None]
  - BLOOD GLUCOSE DECREASED [None]
  - NAUSEA [None]
  - DIARRHOEA [None]
  - ATAXIA [None]
  - VISION BLURRED [None]
  - ABDOMINAL PAIN [None]
  - HEADACHE [None]
